FAERS Safety Report 7605639-8 (Version None)
Quarter: 2011Q3

REPORT INFORMATION
  Report Type: 
  Country: None (occurrence: None)
  Receive Date: 20110713
  Receipt Date: 20110713
  Transmission Date: 20111222
  Serious: Yes (Other)
  Sender: FDA-Public Use
  Company Number: None

PATIENT
  Sex: Female
  Weight: 55.791 kg

DRUGS (1)
  1. CLINDAMYCIN [Suspect]
     Indication: TOOTH ABSCESS
     Dosage: 2 CAPSULES
     Route: 048
     Dates: start: 20110622, end: 20110628

REACTIONS (3)
  - NAUSEA [None]
  - DIARRHOEA [None]
  - ASTHENIA [None]
